FAERS Safety Report 8010110-8 (Version None)
Quarter: 2011Q4

REPORT INFORMATION
  Report Type: 
  Country: None (occurrence: None)
  Receive Date: 20111228
  Receipt Date: 20111216
  Transmission Date: 20120403
  Serious: Yes (Other)
  Sender: FDA-Public Use
  Company Number: DK-UCBSA-047970

PATIENT

DRUGS (1)
  1. CIMZIA [Suspect]
     Route: 058

REACTIONS (4)
  - DYSPNOEA [None]
  - NAUSEA [None]
  - PYREXIA [None]
  - COUGH [None]
